FAERS Safety Report 21518700 (Version 1)
Quarter: 2022Q4

REPORT INFORMATION
  Report Type: Spontaneous
  Country: US (occurrence: None)
  Receive Date: 20221027
  Receipt Date: 20221027
  Transmission Date: 20230113
  Serious: No
  Sender: FDA-Public Use
  Company Number: None

PATIENT
  Age: 67 Year
  Sex: Female
  Weight: 127.8 kg

DRUGS (11)
  1. VALACYCLOVIR [Suspect]
     Active Substance: VALACYCLOVIR HYDROCHLORIDE
     Indication: Herpes zoster
     Dosage: OTHER QUANTITY : 1 TABLET(S)?FREQUENCY : TWICE A DAY?
     Route: 048
     Dates: start: 20221026, end: 20221026
  2. DEVICE [Concomitant]
     Active Substance: DEVICE
  3. AMOXICILLIN [Concomitant]
     Active Substance: AMOXICILLIN
  4. CHLORTHALIDONE [Concomitant]
     Active Substance: CHLORTHALIDONE
  5. EPINEPHRINE [Concomitant]
     Active Substance: EPINEPHRINE
  6. ALBUTEROL [Concomitant]
     Active Substance: ALBUTEROL
  7. ALVESCO [Concomitant]
     Active Substance: CICLESONIDE
  8. FLUORIDE DENT [Concomitant]
  9. LOSARTAN [Concomitant]
     Active Substance: LOSARTAN
  10. GLIPIZIDE [Concomitant]
     Active Substance: GLIPIZIDE
  11. MSM PURE SULFUR [Concomitant]

REACTIONS (7)
  - Feeling cold [None]
  - Chills [None]
  - Headache [None]
  - Rash [None]
  - Eye pruritus [None]
  - Lacrimation increased [None]
  - Skin burning sensation [None]

NARRATIVE: CASE EVENT DATE: 20221026
